FAERS Safety Report 17352754 (Version 3)
Quarter: 2022Q2

REPORT INFORMATION
  Report Type: Spontaneous
  Country: US (occurrence: US)
  Receive Date: 20200131
  Receipt Date: 20220624
  Transmission Date: 20220721
  Serious: Yes (Disabling)
  Sender: FDA-Public Use
  Company Number: US-TEVA-2020-US-1174790

PATIENT
  Age: 66 Year
  Sex: Female

DRUGS (5)
  1. DOCETAXEL [Suspect]
     Active Substance: DOCETAXEL
     Indication: Breast cancer female
     Dosage: DOSE: 80MG, NUMBER OF CYCLES: 06; FREQUENCY: EVERY THREE WEEKS. 80 MG/4ML CONCENTRATE.
     Route: 065
     Dates: start: 20140318, end: 20140701
  2. CARBOPLATIN [Suspect]
     Active Substance: CARBOPLATIN
     Indication: Breast cancer female
     Dosage: 150MG/15ML SOLUTION, NUMBER OF CYCLES: 06; FREQUENCY: EVERY THREE WEEKS.
     Dates: start: 20140318, end: 20140701
  3. DOCETAXEL [Suspect]
     Active Substance: DOCETAXEL
     Indication: Breast cancer female
     Dosage: NUMBER OF CYCLES: 06; FREQUENCY: EVERY THREE WEEKS. 80 MG/4ML CONCENTRATE.
     Dates: start: 20140318, end: 20140701
  4. HERCEPTIN [Suspect]
     Active Substance: TRASTUZUMAB
     Indication: Breast cancer female
     Dosage: NUMBER OF CYCLES: 06; FREQUENCY: EVERY THREE WEEKS
     Dates: start: 20140318, end: 20140701
  5. OMEPRAZOLE [Concomitant]
     Active Substance: OMEPRAZOLE
     Indication: Product used for unknown indication
     Dates: start: 20120102

REACTIONS (6)
  - Alopecia [Not Recovered/Not Resolved]
  - Madarosis [Not Recovered/Not Resolved]
  - Hair texture abnormal [Not Recovered/Not Resolved]
  - Hair colour changes [Not Recovered/Not Resolved]
  - Vulvovaginal mycotic infection [Unknown]
  - Oral candidiasis [Unknown]

NARRATIVE: CASE EVENT DATE: 20140301
